FAERS Safety Report 13613018 (Version 2)
Quarter: 2017Q3

REPORT INFORMATION
  Report Type: Spontaneous
  Country: US (occurrence: US)
  Receive Date: 20170605
  Receipt Date: 20170707
  Transmission Date: 20171127
  Serious: No
  Sender: FDA-Public Use
  Company Number: US-BEH-2017080953

PATIENT
  Age: 7 Year
  Sex: Female

DRUGS (1)
  1. HIZENTRA [Suspect]
     Active Substance: HUMAN IMMUNOGLOBULIN G
     Indication: HYPOGAMMAGLOBULINAEMIA
     Dosage: 5 G TOTAL, QW
     Route: 058
     Dates: end: 201705

REACTIONS (2)
  - Injection site erythema [Recovered/Resolved]
  - Injection site irritation [Recovered/Resolved]
